FAERS Safety Report 10213155 (Version 1)
Quarter: 2014Q2

REPORT INFORMATION
  Report Type: Spontaneous
  Country: US (occurrence: US)
  Receive Date: 20140603
  Receipt Date: 20140603
  Transmission Date: 20141212
  Serious: Yes (Hospitalization)
  Sender: FDA-Public Use
  Company Number: US-BIOGENIDEC-2014BI049844

PATIENT
  Sex: Male

DRUGS (1)
  1. TYSABRI [Suspect]
     Indication: MULTIPLE SCLEROSIS

REACTIONS (4)
  - Herpes simplex encephalitis [Unknown]
  - Diabetes insipidus [Not Recovered/Not Resolved]
  - Renal tubular necrosis [Recovered/Resolved]
  - Hypotension [Recovered/Resolved]
